FAERS Safety Report 4761788-3 (Version None)
Quarter: 2005Q3

REPORT INFORMATION
  Report Type: 
  Country: None (occurrence: None)
  Receive Date: 20050906
  Receipt Date: 20050830
  Transmission Date: 20060218
  Serious: Yes (Hospitalization)
  Sender: FDA-Public Use
  Company Number: JP-SOLVAY-00305002808

PATIENT
  Age: 20 Year
  Sex: Male

DRUGS (3)
  1. RISPERDAL [Concomitant]
     Indication: AUTISM
     Dosage: DAILY DOSE:  UNKNOWN
     Route: 048
  2. LUVOX [Suspect]
     Indication: AUTISM
     Dosage: DAILY DOSE: 100 MILLIGRAM(S)
     Route: 048
  3. LUVOX [Suspect]
     Dosage: DAILY DOSE: 150 MILLIGRAM(S)
     Route: 048

REACTIONS (2)
  - CONVULSION [None]
  - NEUROLEPTIC MALIGNANT SYNDROME [None]
